FAERS Safety Report 5003635-0 (Version None)
Quarter: 2006Q2

REPORT INFORMATION
  Report Type: 
  Country: None (occurrence: None)
  Receive Date: 20060511
  Receipt Date: 20060502
  Transmission Date: 20061013
  Serious: Yes (Hospitalization)
  Sender: FDA-Public Use
  Company Number: 2005-11-0133

PATIENT
  Age: 37 Year
  Sex: Male

DRUGS (12)
  1. TEMODAL [Suspect]
     Indication: GLIOBLASTOMA MULTIFORME
     Dosage: 200 MG/M^2 ORAL
     Route: 048
  2. RADIATION THERAPY [Concomitant]
  3. PACLITAXEL [Concomitant]
  4. VINBLASTINE SULFATE [Concomitant]
  5. CISPLATIN [Concomitant]
  6. MEDROL [Concomitant]
  7. DIFLUCAN [Concomitant]
  8. OMEPRAZOLE [Concomitant]
  9. CLONAZEPAM [Concomitant]
  10. EFFEXOR [Concomitant]
  11. KEPPRA [Concomitant]
  12. DOMINAL [Concomitant]

REACTIONS (5)
  - ADENOIDITIS [None]
  - CARDIOMEGALY [None]
  - FEBRILE NEUTROPENIA [None]
  - INFECTION [None]
  - THROMBOCYTOPENIA [None]
